FAERS Safety Report 5709001-4 (Version None)
Quarter: 2008Q2

REPORT INFORMATION
  Report Type: 
  Country: None (occurrence: None)
  Receive Date: 20080416
  Receipt Date: 20080416
  Transmission Date: 20081010
  Serious: No
  Sender: FDA-Public Use
  Company Number: None

PATIENT

DRUGS (1)
  1. Q-TUSSIN DM SYRUP QUALITEST [Suspect]

REACTIONS (1)
  - MEDICATION ERROR [None]
